FAERS Safety Report 5813300-5 (Version None)
Quarter: 2008Q3

REPORT INFORMATION
  Report Type: 
  Country: None (occurrence: None)
  Receive Date: 20080717
  Receipt Date: 20080714
  Transmission Date: 20090109
  Serious: Yes (Death, Other)
  Sender: FDA-Public Use
  Company Number: GB-BRISTOL-MYERS SQUIBB COMPANY-14263552

PATIENT
  Sex: Male

DRUGS (5)
  1. ENTECAVIR [Suspect]
     Dates: start: 20070501
  2. HEPSERA [Suspect]
     Dates: start: 20060211
  3. TENOFOVIR DISOPROXIL FUMARATE [Suspect]
     Dates: start: 20070501
  4. HEPATITIS B VIRUS VACCINE [Concomitant]
  5. LAMIVUDINE [Concomitant]

REACTIONS (3)
  - DEATH [None]
  - DRUG RESISTANCE [None]
  - VIRAL LOAD INCREASED [None]
